FAERS Safety Report 8859112 (Version 1)
Quarter: 2012Q4

REPORT INFORMATION
  Report Type: Spontaneous
  Country: GB (occurrence: None)
  Receive Date: 20121023
  Receipt Date: 20121023
  Transmission Date: 20130627
  Serious: Yes (Hospitalization)
  Sender: FDA-Public Use
  Company Number: AUR-APL-2012-04447

PATIENT
  Age: 71 Year
  Sex: Female
  Weight: 46.71 kg

DRUGS (9)
  1. SERTRALINE (SERTRALINE) (SERTRALINE) [Suspect]
     Indication: DEPRESSION
     Route: 048
     Dates: start: 20120926, end: 20120928
  2. SERTRALINE (SERTRALINE) (SERTRALINE) [Suspect]
     Indication: DEPRESSION
     Route: 048
     Dates: start: 20120830, end: 20120926
  3. AMITRIPTYLINE (AMITRIPTYLINE) [Concomitant]
  4. BECLOMETASONE (BECLOMETASONE) [Concomitant]
  5. CANDESARTAN CILEXETIL (CANDESARTAN CILEXETIL) [Concomitant]
  6. DIAZEPAM (DIAZEPAM) [Concomitant]
  7. DOXYCYCLINE HYCLATE (DOXYCYCLINE HYCLATE) [Concomitant]
  8. LACRI-LUBE (LACRI-LUBE) [Concomitant]
  9. SODIUM HYALURONATE (HYALURONATE SODIUM) [Concomitant]

REACTIONS (5)
  - Confusional state [None]
  - Agitation [None]
  - Hallucinations, mixed [None]
  - Hyponatraemia [None]
  - Miosis [None]
